FAERS Safety Report 23858509 (Version 1)
Quarter: 2024Q2

REPORT INFORMATION
  Report Type: Spontaneous
  Country: US (occurrence: None)
  Receive Date: 20240514
  Receipt Date: 20240514
  Transmission Date: 20240716
  Serious: Yes (unspecified)
  Sender: FDA-Public Use
  Company Number: None

PATIENT
  Age: 28 Year
  Sex: Female
  Weight: 78.75 kg

DRUGS (7)
  1. COSMETICS [Suspect]
     Active Substance: COSMETICS
     Indication: Personal hygiene
     Dosage: DAILY TOPICAL?
     Route: 061
     Dates: start: 20240416, end: 20240514
  2. BORON [Concomitant]
     Active Substance: BORON
  3. D [Concomitant]
  4. MAGNESIUM [Concomitant]
     Active Substance: MAGNESIUM
  5. HERBALS\TURMERIC [Concomitant]
     Active Substance: HERBALS\TURMERIC
  6. LYSINE [Concomitant]
     Active Substance: LYSINE
  7. pre/probiotic [Concomitant]

REACTIONS (2)
  - Chemical burn [None]
  - Rash [None]

NARRATIVE: CASE EVENT DATE: 20240416
